FAERS Safety Report 18882062 (Version 1)
Quarter: 2021Q1

REPORT INFORMATION
  Report Type: Spontaneous
  Country: US (occurrence: US)
  Receive Date: 20210211
  Receipt Date: 20210211
  Transmission Date: 20210420
  Serious: Yes (Other)
  Sender: FDA-Public Use
  Company Number: NVSC2021US027025

PATIENT
  Sex: Male

DRUGS (2)
  1. TAFINLAR [Suspect]
     Active Substance: DABRAFENIB MESYLATE
     Indication: HISTIOCYTIC SARCOMA
     Dosage: 1 DF, Q12H
     Route: 048
     Dates: start: 20171222
  2. MEKINIST [Suspect]
     Active Substance: TRAMETINIB DIMETHYL SULFOXIDE
     Indication: HISTIOCYTIC SARCOMA
     Dosage: 1.5 MG, QD
     Route: 048
     Dates: start: 20171222

REACTIONS (2)
  - Uveitis [Unknown]
  - Product use in unapproved indication [Unknown]
